FAERS Safety Report 9742834 (Version 2)
Quarter: 2014Q1

REPORT INFORMATION
  Report Type: Spontaneous
  Country: US (occurrence: US)
  Receive Date: 20131210
  Receipt Date: 20140115
  Transmission Date: 20141002
  Serious: No
  Sender: FDA-Public Use
  Company Number: US-PFIZER INC-2013350129

PATIENT
  Sex: Female

DRUGS (4)
  1. PREMARIN [Suspect]
     Indication: HORMONE REPLACEMENT THERAPY
     Dosage: 1.25 MG, UNK
     Route: 048
     Dates: end: 2013
  2. GLIPIZIDE [Suspect]
     Indication: DIABETES MELLITUS
     Dosage: 10 MG (BY TAKING TWO TABLETS OF 5MG), 1X/DAY
     Route: 048
     Dates: start: 2013
  3. ZOLOFT [Concomitant]
     Dosage: UNK
  4. DIOVAN [Concomitant]
     Dosage: UNK

REACTIONS (6)
  - Hot flush [Unknown]
  - Dizziness [Not Recovered/Not Resolved]
  - Back pain [Not Recovered/Not Resolved]
  - Arthralgia [Not Recovered/Not Resolved]
  - Blood glucose abnormal [Unknown]
  - Drug ineffective [Not Recovered/Not Resolved]
